FAERS Safety Report 10146913 (Version 1)
Quarter: 2014Q2

REPORT INFORMATION
  Report Type: Spontaneous
  Country: US (occurrence: US)
  Receive Date: 20140501
  Receipt Date: 20140501
  Transmission Date: 20141212
  Serious: Yes (Other)
  Sender: FDA-Public Use
  Company Number: US-PFIZER INC-2014117474

PATIENT
  Sex: Female

DRUGS (3)
  1. LIPITOR [Suspect]
     Dosage: UNK
  2. GLUCOTROL [Suspect]
     Dosage: UNK
  3. PROTONIX [Suspect]
     Dosage: UNK

REACTIONS (2)
  - Fall [Unknown]
  - Upper limb fracture [Unknown]
